FAERS Safety Report 6058072-7 (Version None)
Quarter: 2009Q1

REPORT INFORMATION
  Report Type: 
  Country: None (occurrence: None)
  Receive Date: 20090127
  Receipt Date: 20090115
  Transmission Date: 20090719
  Serious: Yes (Other)
  Sender: FDA-Public Use
  Company Number: CHPA2009US00789

PATIENT
  Age: 23 Year
  Sex: Male
  Weight: 89.8 kg

DRUGS (1)
  1. EXCEDRIN PM        (ACETAMINOPHEN (PARACETAMOL), DIPHENHYDRAMINE HYDRO [Suspect]
     Indication: HEADACHE
     Dosage: 3 DF, QID, ORAL
     Route: 048
     Dates: start: 20090101

REACTIONS (5)
  - CONDITION AGGRAVATED [None]
  - HEADACHE [None]
  - OVERDOSE [None]
  - SWOLLEN TONGUE [None]
  - TONGUE HAEMORRHAGE [None]
